FAERS Safety Report 8253806-5 (Version None)
Quarter: 2012Q2

REPORT INFORMATION
  Report Type: 
  Country: None (occurrence: None)
  Receive Date: 20120402
  Receipt Date: 20120314
  Transmission Date: 20120825
  Serious: No
  Sender: FDA-Public Use
  Company Number: US-AMGEN-USASP2012016784

PATIENT
  Age: 73 Year
  Sex: Female

DRUGS (1)
  1. ENBREL [Suspect]
     Indication: MIXED CONNECTIVE TISSUE DISEASE
     Dosage: 50 MG, QWK
     Dates: start: 20051101, end: 20120312

REACTIONS (6)
  - MUSCULAR WEAKNESS [None]
  - FALL [None]
  - CONTUSION [None]
  - HYPOAESTHESIA [None]
  - WALKING AID USER [None]
  - PARAESTHESIA [None]
